FAERS Safety Report 18390956 (Version 32)
Quarter: 2023Q4

REPORT INFORMATION
  Report Type: Spontaneous
  Country: CA (occurrence: CA)
  Receive Date: 20201016
  Receipt Date: 20231110
  Transmission Date: 20240109
  Serious: Yes (Other)
  Sender: FDA-Public Use
  Company Number: CA-CELLTRION INC.-2020CA024576

PATIENT

DRUGS (30)
  1. INFLECTRA [Suspect]
     Active Substance: INFLIXIMAB-DYYB
     Indication: Crohn^s disease
     Dosage: 5 MG/KG, AT 0, 2, 6, THEN EVERY 8 WEEKS
     Route: 042
     Dates: start: 20200702, end: 20210715
  2. INFLECTRA [Suspect]
     Active Substance: INFLIXIMAB-DYYB
     Dosage: 5 MG/KG AT 0, 2, 6, THEN EVERY 8 WEEKS
     Route: 042
     Dates: start: 20200716, end: 20200716
  3. INFLECTRA [Suspect]
     Active Substance: INFLIXIMAB-DYYB
     Dosage: 5 MG/KG AT 0, 2, 6, THEN EVERY 8 WEEKS
     Route: 042
     Dates: start: 20200813, end: 20200813
  4. INFLECTRA [Suspect]
     Active Substance: INFLIXIMAB-DYYB
     Dosage: 5 MG/KG AT 0, 2, 6, THEN EVERY 8 WEEKS
     Route: 042
     Dates: start: 20201007
  5. INFLECTRA [Suspect]
     Active Substance: INFLIXIMAB-DYYB
     Dosage: 5 MG/KG AT 0, 2, 6, THEN EVERY 8 WEEKS
     Route: 042
     Dates: start: 20201202
  6. INFLECTRA [Suspect]
     Active Substance: INFLIXIMAB-DYYB
     Dosage: 5 MG/KG AT 0, 2, 6, THEN EVERY 8 WEEKS
     Route: 042
     Dates: start: 20210127
  7. INFLECTRA [Suspect]
     Active Substance: INFLIXIMAB-DYYB
     Dosage: 5 MG/KG AT 0, 2, 6, THEN EVERY 8 WEEKS
     Route: 042
     Dates: start: 20210322
  8. INFLECTRA [Suspect]
     Active Substance: INFLIXIMAB-DYYB
     Dosage: 5 MG/KG ,AT 0, 2, 6, THEN EVERY 8 WEEKS
     Route: 042
     Dates: start: 20210715
  9. INFLECTRA [Suspect]
     Active Substance: INFLIXIMAB-DYYB
     Dosage: 10 MG/KG, EVERY 7 WEEKS
     Route: 042
     Dates: start: 20210908
  10. INFLECTRA [Suspect]
     Active Substance: INFLIXIMAB-DYYB
     Dosage: 10 MG/KG, EVERY 7 WEEKS
     Route: 042
     Dates: start: 20210908, end: 20220225
  11. INFLECTRA [Suspect]
     Active Substance: INFLIXIMAB-DYYB
     Dosage: 10 MG/KG, EVERY 7 WEEKS
     Route: 042
     Dates: start: 20211027
  12. INFLECTRA [Suspect]
     Active Substance: INFLIXIMAB-DYYB
     Dosage: 10 MG/KG, EVERY 7 WEEKS
     Route: 042
     Dates: start: 20220106
  13. INFLECTRA [Suspect]
     Active Substance: INFLIXIMAB-DYYB
     Dosage: 10 MG/KG, EVERY 7 WEEKS
     Route: 042
     Dates: start: 20220225
  14. INFLECTRA [Suspect]
     Active Substance: INFLIXIMAB-DYYB
     Dosage: 10 MG/KG, EVERY 5 WEEKS
     Route: 042
     Dates: start: 20220418
  15. INFLECTRA [Suspect]
     Active Substance: INFLIXIMAB-DYYB
     Dosage: 10 MG/KG, EVERY 5 WEEKS
     Route: 042
     Dates: start: 20220418, end: 20220627
  16. INFLECTRA [Suspect]
     Active Substance: INFLIXIMAB-DYYB
     Dosage: 10 MG/KG, EVERY 5 WEEKS
     Route: 042
     Dates: start: 20220520
  17. INFLECTRA [Suspect]
     Active Substance: INFLIXIMAB-DYYB
     Dosage: 10 MG/KG, EVERY 5 WEEKS
     Route: 042
     Dates: start: 20220627
  18. INFLECTRA [Suspect]
     Active Substance: INFLIXIMAB-DYYB
     Dosage: 10 MG/KG, EVERY 6 WEEK
     Route: 042
     Dates: start: 20220804
  19. INFLECTRA [Suspect]
     Active Substance: INFLIXIMAB-DYYB
     Dosage: 10 MG/KG, EVERY 6 WEEK
     Route: 042
     Dates: start: 20220908
  20. INFLECTRA [Suspect]
     Active Substance: INFLIXIMAB-DYYB
     Dosage: 10 MG/KG, EVERY 6 WEEKS
     Route: 042
     Dates: start: 20221014
  21. INFLECTRA [Suspect]
     Active Substance: INFLIXIMAB-DYYB
     Dosage: 10 MG/KG, EVERY 6 WEEKS
     Route: 042
     Dates: start: 20221128
  22. INFLECTRA [Suspect]
     Active Substance: INFLIXIMAB-DYYB
     Dosage: 10 MG/KG, EVERY 6 WEEKS
     Route: 042
     Dates: start: 20230109
  23. INFLECTRA [Suspect]
     Active Substance: INFLIXIMAB-DYYB
     Dosage: 10 MG/KG, EVERY 6 WEEKS
     Route: 042
     Dates: start: 20230220
  24. INFLECTRA [Suspect]
     Active Substance: INFLIXIMAB-DYYB
     Dosage: 10 MG/KG, EVERY 6 WEEKS
     Route: 042
     Dates: start: 20230220
  25. INFLECTRA [Suspect]
     Active Substance: INFLIXIMAB-DYYB
     Dosage: 10 MG/KG (630MG), EVERY 6 WEEKS
     Route: 042
     Dates: start: 20230403
  26. INFLECTRA [Suspect]
     Active Substance: INFLIXIMAB-DYYB
     Dosage: 10 MG/KG (610MG), EVERY 6 WEEKS
     Route: 042
     Dates: start: 20230517
  27. INFLECTRA [Suspect]
     Active Substance: INFLIXIMAB-DYYB
     Dosage: 10 MG/KG EVERY 6 WEEKS
     Route: 042
     Dates: start: 20230627
  28. INFLECTRA [Suspect]
     Active Substance: INFLIXIMAB-DYYB
     Dosage: 620 MG (10 MG/KG) EVERY 6 WEEKS
     Route: 042
     Dates: start: 20230809
  29. INFLECTRA [Suspect]
     Active Substance: INFLIXIMAB-DYYB
     Dosage: 10 MG/KG, EVERY 6 WEEKS
     Route: 042
     Dates: start: 20230920
  30. PREDNISONE [Concomitant]
     Active Substance: PREDNISONE
     Dosage: 10 MG
     Route: 048

REACTIONS (31)
  - Weight increased [Unknown]
  - Condition aggravated [Recovered/Resolved]
  - Drug level above therapeutic [Unknown]
  - Cyst [Not Recovered/Not Resolved]
  - Musculoskeletal stiffness [Not Recovered/Not Resolved]
  - Sputum discoloured [Not Recovered/Not Resolved]
  - Ear discomfort [Not Recovered/Not Resolved]
  - Otorrhoea [Not Recovered/Not Resolved]
  - Cough [Not Recovered/Not Resolved]
  - Acne [Not Recovered/Not Resolved]
  - Mucosal dryness [Not Recovered/Not Resolved]
  - Mobility decreased [Not Recovered/Not Resolved]
  - Secretion discharge [Not Recovered/Not Resolved]
  - Weight fluctuation [Unknown]
  - Arthralgia [Not Recovered/Not Resolved]
  - Hypoaesthesia [Not Recovered/Not Resolved]
  - Palpitations [Not Recovered/Not Resolved]
  - Dyspnoea [Recovered/Resolved]
  - Nasopharyngitis [Not Recovered/Not Resolved]
  - Cough [Recovered/Resolved]
  - Rash [Not Recovered/Not Resolved]
  - Paraesthesia [Not Recovered/Not Resolved]
  - Pruritus [Recovered/Resolved]
  - COVID-19 [Recovered/Resolved]
  - Pyrexia [Recovered/Resolved]
  - Oropharyngeal pain [Recovering/Resolving]
  - Headache [Not Recovered/Not Resolved]
  - Myalgia [Not Recovered/Not Resolved]
  - Maternal exposure during pregnancy [Unknown]
  - Inappropriate schedule of product administration [Unknown]
  - Off label use [Unknown]

NARRATIVE: CASE EVENT DATE: 20201007
